FAERS Safety Report 10022048 (Version 1)
Quarter: 2013Q4

REPORT INFORMATION
  Report Type: Spontaneous
  Country: CN (occurrence: None)
  Receive Date: 20131211
  Receipt Date: 20131211
  Transmission Date: 20140711
  Serious: Yes (Other)
  Sender: FDA-Public Use
  Company Number: 7197476

PATIENT
  Age: 27 Year
  Sex: Female

DRUGS (1)
  1. EUTHYROX [Suspect]
     Indication: HYPOTHYROIDISM
     Dosage: 0.5 DF, 1 IN 1 D?
     Route: 048
     Dates: start: 20130302, end: 20130304

REACTIONS (3)
  - Abortion induced [None]
  - Maternal exposure during pregnancy [None]
  - Laboratory test abnormal [None]
